FAERS Safety Report 9318882 (Version 1)
Quarter: 2013Q2

REPORT INFORMATION
  Report Type: Spontaneous
  Country: US (occurrence: US)
  Receive Date: 20130530
  Receipt Date: 20130530
  Transmission Date: 20140414
  Serious: No
  Sender: FDA-Public Use
  Company Number: US-NOVEN-13US006329

PATIENT
  Age: 41 Year
  Sex: Female

DRUGS (1)
  1. DAYTRANA [Suspect]
     Indication: ATTENTION DEFICIT/HYPERACTIVITY DISORDER
     Dosage: 2 X 20 MG, QD
     Route: 062
     Dates: start: 20130220

REACTIONS (5)
  - Off label use [Not Recovered/Not Resolved]
  - Drug prescribing error [Not Recovered/Not Resolved]
  - Wrong technique in drug usage process [Not Recovered/Not Resolved]
  - Product quality issue [Not Recovered/Not Resolved]
  - No adverse event [None]
